FAERS Safety Report 15309435 (Version 1)
Quarter: 2018Q3

REPORT INFORMATION
  Report Type: Spontaneous
  Country: US (occurrence: US)
  Receive Date: 20180811
  Receipt Date: 20180811
  Transmission Date: 20181010
  Serious: Yes (Disabling)
  Sender: FDA-Public Use
  Company Number: None

PATIENT
  Age: 27 Year
  Sex: Female

DRUGS (1)
  1. PARAGARD T 380A [Suspect]
     Active Substance: COPPER

REACTIONS (7)
  - Pain [None]
  - Paranoia [None]
  - Depression [None]
  - Anxiety [None]
  - Toxicity to various agents [None]
  - Mental status changes [None]
  - Irritability [None]

NARRATIVE: CASE EVENT DATE: 20180717
